FAERS Safety Report 8480689-0 (Version None)
Quarter: 2012Q3

REPORT INFORMATION
  Report Type: 
  Country: None (occurrence: None)
  Receive Date: 20120702
  Receipt Date: 20120627
  Transmission Date: 20120928
  Serious: No
  Sender: FDA-Public Use
  Company Number: US-PFIZER INC-2012155612

PATIENT
  Sex: Female
  Weight: 75.283 kg

DRUGS (3)
  1. LISINOPRIL [Concomitant]
     Dosage: UNK
  2. SYNTHROID [Concomitant]
     Dosage: UNK
  3. SUTENT [Suspect]
     Indication: RENAL CELL CARCINOMA
     Dosage: 50 MG, UNK
     Dates: start: 20120613

REACTIONS (4)
  - MYALGIA [None]
  - SKIN EXFOLIATION [None]
  - BLOOD PRESSURE FLUCTUATION [None]
  - HEADACHE [None]
